FAERS Safety Report 14163039 (Version 1)
Quarter: 2017Q4

REPORT INFORMATION
  Report Type: Spontaneous
  Country: CA (occurrence: CA)
  Receive Date: 20171106
  Receipt Date: 20171106
  Transmission Date: 20180321
  Serious: Yes (Other)
  Sender: FDA-Public Use
  Company Number: CA-MALLINCKRODT-T201704378

PATIENT
  Age: 38 Week

DRUGS (1)
  1. INOMAX [Suspect]
     Active Substance: NITRIC OXIDE
     Indication: PULMONARY HYPERTENSION
     Dosage: UNKNOWN
     Route: 065

REACTIONS (2)
  - Dyspnoea [Recovering/Resolving]
  - Oliguria [Recovering/Resolving]
